FAERS Safety Report 18634302 (Version 1)
Quarter: 2020Q4

REPORT INFORMATION
  Report Type: Spontaneous
  Country: US (occurrence: US)
  Receive Date: 20201218
  Receipt Date: 20201218
  Transmission Date: 20210114
  Serious: Yes (Hospitalization)
  Sender: FDA-Public Use
  Company Number: None

PATIENT
  Age: 81 Year
  Sex: Male
  Weight: 85.1 kg

DRUGS (3)
  1. CEFTRIAXONE 1GM IV [Concomitant]
     Dates: start: 20201213, end: 20201215
  2. SODIUM CHLORIDE 0.9% BOLUS [Concomitant]
     Dates: start: 20201213
  3. BAMLANIVIMAB. [Suspect]
     Active Substance: BAMLANIVIMAB
     Indication: COVID-19 PNEUMONIA
     Route: 041
     Dates: start: 20201213, end: 20201213

REACTIONS (4)
  - Wheezing [None]
  - Use of accessory respiratory muscles [None]
  - Hypersensitivity [None]
  - Respiratory distress [None]

NARRATIVE: CASE EVENT DATE: 20201213
